FAERS Safety Report 8734454 (Version 3)
Quarter: 2013Q2

REPORT INFORMATION
  Report Type: Spontaneous
  Country: US (occurrence: US)
  Receive Date: 20120821
  Receipt Date: 20130401
  Transmission Date: 20140414
  Serious: Yes (Congenital Anomaly)
  Sender: FDA-Public Use
  Company Number: US-GLAXOSMITHKLINE-A0989535C

PATIENT
  Sex: Female

DRUGS (3)
  1. ADVAIR [Suspect]
     Route: 064
  2. PRENATAL VITAMINS [Concomitant]
  3. FERTILITY TREATMENT [Concomitant]

REACTIONS (4)
  - Trisomy 21 [Unknown]
  - Trisomy 22 [Unknown]
  - Trisomy 14 [Unknown]
  - Foetal exposure during pregnancy [Unknown]
